FAERS Safety Report 16227733 (Version 8)
Quarter: 2020Q1

REPORT INFORMATION
  Report Type: Spontaneous
  Country: US (occurrence: US)
  Receive Date: 20190423
  Receipt Date: 20200211
  Transmission Date: 20200409
  Serious: No
  Sender: FDA-Public Use
  Company Number: US-PFIZER INC-2019169631

PATIENT
  Age: 66 Year
  Sex: Female
  Weight: 84 kg

DRUGS (7)
  1. CLONAZEPAM. [Concomitant]
     Active Substance: CLONAZEPAM
     Indication: BIPOLAR II DISORDER
     Dosage: 2 MG, 3X/DAY
     Route: 048
     Dates: start: 1990
  2. LYRICA CR [Suspect]
     Active Substance: PREGABALIN
     Indication: INTERVERTEBRAL DISC PROTRUSION
  3. METOPROLOL TARTRATE. [Concomitant]
     Active Substance: METOPROLOL TARTRATE
     Indication: HYPERTENSION
     Dosage: 25 MG, 2X/DAY (ONE IN MORNING AND ONE IN EVENING)
     Dates: start: 2008
  4. CLONAZEPAM. [Concomitant]
     Active Substance: CLONAZEPAM
     Indication: DEPRESSION
  5. CLONAZEPAM. [Concomitant]
     Active Substance: CLONAZEPAM
     Indication: PANIC ATTACK
  6. LYRICA CR [Suspect]
     Active Substance: PREGABALIN
     Indication: NEURALGIA
     Dosage: 165 MG, 1X/DAY (IN THE EVENING)
     Route: 048
     Dates: start: 20190228
  7. LYRICA CR [Suspect]
     Active Substance: PREGABALIN
     Indication: BACK PAIN
     Dosage: 165 MG, 1X/DAY (IN THE EVENING)
     Route: 048

REACTIONS (20)
  - Tremor [Unknown]
  - Paraesthesia [Unknown]
  - Muscular weakness [Unknown]
  - Dehydration [Unknown]
  - White coat hypertension [Unknown]
  - Pain [Not Recovered/Not Resolved]
  - Vitamin D deficiency [Unknown]
  - Hypoaesthesia [Unknown]
  - Dizziness [Unknown]
  - Peripheral swelling [Recovering/Resolving]
  - Loss of personal independence in daily activities [Not Recovered/Not Resolved]
  - Withdrawal syndrome [Unknown]
  - Asthenia [Not Recovered/Not Resolved]
  - Weight increased [Unknown]
  - Fatigue [Unknown]
  - Therapeutic product effect incomplete [Unknown]
  - Gait inability [Not Recovered/Not Resolved]
  - Memory impairment [Unknown]
  - Joint swelling [Recovering/Resolving]
  - Feeling abnormal [Unknown]

NARRATIVE: CASE EVENT DATE: 20180307
